FAERS Safety Report 9219444 (Version 1)
Quarter: 2013Q2

REPORT INFORMATION
  Report Type: Spontaneous
  Country: US (occurrence: US)
  Receive Date: 20130409
  Receipt Date: 20130409
  Transmission Date: 20140414
  Serious: No
  Sender: FDA-Public Use
  Company Number: US-PFIZER INC-2013110017

PATIENT
  Age: 41 Year
  Sex: Female
  Weight: 72.56 kg

DRUGS (3)
  1. ADVIL [Suspect]
     Indication: MENSTRUAL DISORDER
     Dosage: UNK
     Route: 048
  2. ADVIL [Suspect]
     Dosage: 200 MG, AS NEEDED
     Route: 048
     Dates: start: 2013
  3. ADVIL [Suspect]
     Dosage: TOOK 20 TABLETS (4 TABLETS OF 200 MG EVERY FOUR HOURS)
     Route: 048
     Dates: start: 20130407, end: 201304

REACTIONS (5)
  - Overdose [Unknown]
  - Off label use [Unknown]
  - Pre-existing condition improved [Unknown]
  - Therapeutic response unexpected [Unknown]
  - Menorrhagia [Unknown]
